FAERS Safety Report 17868723 (Version 2)
Quarter: 2021Q3

REPORT INFORMATION
  Report Type: Report from Study
  Country: JP (occurrence: JP)
  Receive Date: 20200607
  Receipt Date: 20210913
  Transmission Date: 20211014
  Serious: Yes (Hospitalization, Disabling, Other)
  Sender: FDA-Public Use
  Company Number: JP-RECORDATI RARE DISEASES INC.-JP-R13005-19-00258

PATIENT
  Age: 1 Day
  Sex: Male
  Weight: .73 kg

DRUGS (23)
  1. GLUCOSE [Concomitant]
     Active Substance: DEXTROSE
     Indication: NUTRITIONAL SUPPLEMENTATION
     Route: 042
     Dates: start: 20190830, end: 20190902
  2. INTRALIPOS [Concomitant]
     Active Substance: SOYBEAN OIL
     Indication: NUTRITIONAL SUPPLEMENTATION
     Route: 042
     Dates: start: 20190901, end: 20190910
  3. MILRILA [Concomitant]
     Active Substance: MILRINONE
     Indication: CARDIAC FAILURE
     Route: 042
     Dates: start: 20190901, end: 20190904
  4. FENTANYL. [Concomitant]
     Active Substance: FENTANYL
     Indication: SEDATION
     Route: 042
     Dates: start: 20190831, end: 20190906
  5. SOLU?CORTEF [Concomitant]
     Active Substance: HYDROCORTISONE SODIUM SUCCINATE
     Indication: HYPOTENSION
     Route: 042
     Dates: start: 20190831, end: 20190831
  6. NOBELBAR [Concomitant]
     Active Substance: PHENOBARBITAL SODIUM
     Indication: SEDATION
     Route: 042
     Dates: start: 20190901, end: 20190905
  7. PLEAMIN?P [Concomitant]
     Indication: NUTRITIONAL SUPPLEMENTATION
     Route: 042
     Dates: start: 20190831, end: 20190912
  8. GENTACIN [Concomitant]
     Active Substance: GENTAMICIN SULFATE
     Indication: INFECTION PROPHYLAXIS
     Route: 042
     Dates: start: 20190831, end: 20190831
  9. PHYSIO 35 [Concomitant]
     Active Substance: ELECTROLYTES NOS
     Indication: FLUID REPLACEMENT
     Route: 042
     Dates: start: 20190902, end: 20190912
  10. KAYTWO N [Concomitant]
     Active Substance: MENATETRENONE
     Indication: VITAMIN SUPPLEMENTATION
     Route: 042
     Dates: start: 20190831, end: 20190903
  11. HUMULIN R [Concomitant]
     Active Substance: INSULIN HUMAN
     Indication: HYPERKALAEMIA
     Route: 065
     Dates: start: 20190901, end: 20190901
  12. NEOPROFEN [Suspect]
     Active Substance: IBUPROFEN LYSINE
     Dosage: 4 MILLIGRAM
     Route: 042
     Dates: start: 20190903, end: 20190903
  13. NEOPROFEN [Suspect]
     Active Substance: IBUPROFEN LYSINE
     Dosage: 4 MILLIGRAM
     Route: 042
     Dates: start: 20190906, end: 20190906
  14. NEOPROFEN [Suspect]
     Active Substance: IBUPROFEN LYSINE
     Dosage: 4 MILLIGRAM, QD
     Route: 042
     Dates: start: 20190907, end: 20190907
  15. CALCICOL [Concomitant]
     Active Substance: CALCIUM GLUCONATE
     Indication: MINERAL SUPPLEMENTATION
     Route: 042
     Dates: start: 20190830, end: 20190912
  16. MEYLON [Concomitant]
     Active Substance: SODIUM BICARBONATE
     Indication: METABOLIC ACIDOSIS
     Route: 042
     Dates: start: 20190901, end: 20190906
  17. SODIUM PHOSPHATE HYDRATE [Concomitant]
     Indication: MINERAL SUPPLEMENTATION
     Route: 042
     Dates: start: 20190905, end: 20190917
  18. NEOPROFEN [Suspect]
     Active Substance: IBUPROFEN LYSINE
     Indication: PATENT DUCTUS ARTERIOSUS
     Dosage: 8 MILLIGRAM, QD
     Route: 042
     Dates: start: 20190831, end: 20190831
  19. NEOPROFEN [Suspect]
     Active Substance: IBUPROFEN LYSINE
     Dosage: 4 MILLIGRAM
     Route: 042
     Dates: start: 20190901, end: 20190901
  20. NEOPROFEN [Suspect]
     Active Substance: IBUPROFEN LYSINE
     Dosage: 8 MILLIGRAM, QD
     Route: 042
     Dates: start: 20190905, end: 20190905
  21. VICCILLIN [Concomitant]
     Active Substance: AMPICILLIN
     Indication: INFECTION PROPHYLAXIS
     Route: 065
     Dates: start: 20190831, end: 20190903
  22. LASIX [Concomitant]
     Active Substance: FUROSEMIDE
     Indication: CARDIAC FAILURE
     Route: 042
     Dates: start: 20190831, end: 20190902
  23. RESPIA [Concomitant]
     Active Substance: CAFFEINE
     Indication: APNOEIC ATTACK
     Route: 042
     Dates: start: 20190907, end: 20190917

REACTIONS (5)
  - Posthaemorrhagic hydrocephalus [Recovering/Resolving]
  - Intraventricular haemorrhage [Recovering/Resolving]
  - Anaemia [Recovered/Resolved]
  - Drug ineffective [Recovering/Resolving]
  - Renal impairment [Recovered/Resolved]

NARRATIVE: CASE EVENT DATE: 20190831
